FAERS Safety Report 8376588-5 (Version None)
Quarter: 2012Q2

REPORT INFORMATION
  Report Type: 
  Country: None (occurrence: None)
  Receive Date: 20120522
  Receipt Date: 20120518
  Transmission Date: 20120825
  Serious: No
  Sender: FDA-Public Use
  Company Number: US-PFIZER INC-2012121508

PATIENT
  Sex: Female
  Weight: 77.098 kg

DRUGS (4)
  1. ACTOS [Concomitant]
     Indication: DIABETES MELLITUS
     Dosage: 50 MG, 2X/DAY
  2. NEURONTIN [Suspect]
     Dosage: 600 MG, 2X/DAY
  3. NEURONTIN [Suspect]
     Indication: NEURALGIA
     Dosage: 300 MG, 2X/DAY
  4. NOVOLIN 70/30 [Concomitant]
     Indication: DIABETES MELLITUS
     Dosage: 28 IU, 1X/DAY

REACTIONS (1)
  - DRUG INEFFECTIVE [None]
